FAERS Safety Report 5365344-8 (Version None)
Quarter: 2007Q2

REPORT INFORMATION
  Report Type: 
  Country: None (occurrence: None)
  Receive Date: 20070530
  Receipt Date: 20070116
  Transmission Date: 20071010
  Serious: No
  Sender: FDA-Public Use
  Company Number: 2006PV006797

PATIENT
  Age: 65 Year
  Sex: Female

DRUGS (4)
  1. BYETTA [Suspect]
     Indication: DIABETES MELLITUS NON-INSULIN-DEPENDENT
     Dosage: 5 MCG; BID; SC, 10 MCG; BID; SC
     Route: 058
     Dates: start: 20051001, end: 20060101
  2. BYETTA [Suspect]
     Indication: DIABETES MELLITUS NON-INSULIN-DEPENDENT
     Dosage: 5 MCG; BID; SC, 10 MCG; BID; SC
     Route: 058
     Dates: start: 20060101
  3. METFORMIN HCL [Concomitant]
  4. NEXIUM [Concomitant]

REACTIONS (6)
  - ABDOMINAL DISCOMFORT [None]
  - CONSTIPATION [None]
  - DIARRHOEA [None]
  - INCORRECT DOSE ADMINISTERED [None]
  - NAUSEA [None]
  - VOMITING [None]
